FAERS Safety Report 14023083 (Version 1)
Quarter: 2017Q3

REPORT INFORMATION
  Report Type: Spontaneous
  Country: US (occurrence: None)
  Receive Date: 20170929
  Receipt Date: 20170929
  Transmission Date: 20171128
  Serious: Yes (Death)
  Sender: FDA-Public Use
  Company Number: None

PATIENT
  Sex: Female
  Weight: 92.08 kg

DRUGS (2)
  1. PROLIA [Suspect]
     Active Substance: DENOSUMAB
     Indication: HYPOTHYROIDISM
     Dosage: Q6MONTH SUBQ
     Route: 058
     Dates: start: 201703
  2. PROLIA [Suspect]
     Active Substance: DENOSUMAB
     Indication: TYPE V HYPERLIPIDAEMIA
     Dosage: Q6MONTH SUBQ
     Route: 058
     Dates: start: 201703

REACTIONS (1)
  - Death [None]
